FAERS Safety Report 7700037-0 (Version None)
Quarter: 2011Q3

REPORT INFORMATION
  Report Type: 
  Country: None (occurrence: None)
  Receive Date: 20110822
  Receipt Date: 20110809
  Transmission Date: 20111222
  Serious: Yes (Hospitalization, Other)
  Sender: FDA-Public Use
  Company Number: CA-ELI_LILLY_AND_COMPANY-CA201108002866

PATIENT
  Sex: Male

DRUGS (11)
  1. ZYPREXA [Suspect]
     Dosage: 20 MG, UNK
  2. ZYPREXA [Suspect]
     Indication: SCHIZOPHRENIA
     Dosage: 2.5 MG, UNK
     Dates: start: 20011206
  3. ZYPREXA [Suspect]
     Dosage: 10 MG, UNK
  4. BENZTROPINE MESYLATE [Concomitant]
  5. FLUANXOL [Concomitant]
  6. RISPERIDONE [Concomitant]
  7. ZYPREXA [Suspect]
     Dosage: 5 MG, UNK
  8. ZYPREXA [Suspect]
     Dosage: 15 MG, EACH EVENING
  9. OXAZEPAM [Concomitant]
  10. IMOVANE [Concomitant]
  11. CELEXA [Concomitant]

REACTIONS (12)
  - OEDEMA PERIPHERAL [None]
  - PAIN IN EXTREMITY [None]
  - WEIGHT INCREASED [None]
  - HEPATITIS B [None]
  - HYPERTENSION [None]
  - URINARY TRACT INFECTION [None]
  - HEPATIC CIRRHOSIS [None]
  - DIABETES MELLITUS [None]
  - RASH [None]
  - PANCREATITIS [None]
  - CELLULITIS [None]
  - BLOOD TRIGLYCERIDES INCREASED [None]
